FAERS Safety Report 8330379-X (Version None)
Quarter: 2012Q2

REPORT INFORMATION
  Report Type: 
  Country: None (occurrence: None)
  Receive Date: 20120502
  Receipt Date: 20120419
  Transmission Date: 20120825
  Serious: Yes (Other)
  Sender: FDA-Public Use
  Company Number: US-MYLANLABS-2012S1008416

PATIENT
  Age: 85 Year
  Sex: Female

DRUGS (6)
  1. METOPROLOL SUCCINATE [Concomitant]
     Dosage: 25MG DAILY
  2. CRANBERRY [Interacting]
     Dosage: APPROXIMATELY 2 TSP CRANBERRY SAUCE
     Route: 048
     Dates: start: 20071122
  3. DIGOXIN [Concomitant]
     Dosage: 0.25MG DAILY
     Route: 065
  4. HYDROCHLOROTHIAZIDE [Concomitant]
     Dosage: 25MG DAILY
     Route: 065
  5. WARFARIN SODIUM [Suspect]
     Indication: ATRIAL FIBRILLATION
     Dosage: 50-52.5 MG/WEEK; WAS RECEIVING 52.5 MG/WEEK AT ADR ONSET
     Route: 065
  6. LISINOPRIL [Concomitant]
     Dosage: 2.5MG DAILY
     Route: 065

REACTIONS (2)
  - INTERNATIONAL NORMALISED RATIO INCREASED [None]
  - FOOD INTERACTION [None]
